FAERS Safety Report 14407709 (Version 1)
Quarter: 2018Q1

REPORT INFORMATION
  Report Type: Spontaneous
  Country: MX (occurrence: MX)
  Receive Date: 20180117
  Receipt Date: 20180117
  Transmission Date: 20180509
  Serious: Yes (Other)
  Sender: FDA-Public Use
  Company Number: None

PATIENT
  Age: 36 Year
  Sex: Female
  Weight: 58 kg

DRUGS (3)
  1. ONDANSETRON [Concomitant]
     Active Substance: ONDANSETRON
  2. CARMUSTINA, 1 GM [Suspect]
     Active Substance: CARMUSTINE
     Indication: NON-HODGKIN^S LYMPHOMA
     Route: 041
     Dates: start: 20180116, end: 20180116
  3. OMEPRAZOLE. [Concomitant]
     Active Substance: OMEPRAZOLE

REACTIONS (3)
  - Eyelid oedema [None]
  - Cardiac disorder [None]
  - Rash [None]

NARRATIVE: CASE EVENT DATE: 20180116
